FAERS Safety Report 7743710-0 (Version None)
Quarter: 2011Q3

REPORT INFORMATION
  Report Type: 
  Country: None (occurrence: None)
  Receive Date: 20110906
  Receipt Date: 20110824
  Transmission Date: 20111222
  Serious: Yes (Hospitalization, Disabling, Other)
  Sender: FDA-Public Use
  Company Number: 2011SP015421

PATIENT
  Age: 27 Year
  Sex: Female
  Weight: 67.1324 kg

DRUGS (2)
  1. NUVARING [Suspect]
     Indication: CONTRACEPTION
     Dates: start: 20060801, end: 20080425
  2. UNSPECIFIED [Suspect]
     Indication: PRODUCT USED FOR UNKNOWN INDICATION

REACTIONS (31)
  - ARTERIAL THROMBOSIS LIMB [None]
  - VOMITING [None]
  - DEPRESSION [None]
  - FALL [None]
  - CYANOSIS [None]
  - HEART RATE IRREGULAR [None]
  - HAEMATOMA [None]
  - INFLAMMATION [None]
  - HYPERCHOLESTEROLAEMIA [None]
  - MIGRAINE [None]
  - ECZEMA [None]
  - HYPERCOAGULATION [None]
  - DEEP VEIN THROMBOSIS [None]
  - PULSE ABSENT [None]
  - CAESAREAN SECTION [None]
  - VISUAL ACUITY REDUCED [None]
  - MASS [None]
  - SYNCOPE [None]
  - SINUS TACHYCARDIA [None]
  - HYPOTHALAMO-PITUITARY DISORDER [None]
  - PAIN IN EXTREMITY [None]
  - LACERATION [None]
  - MENTAL DISORDER [None]
  - DRUG INTERACTION [None]
  - SUBCLAVIAN ARTERY THROMBOSIS [None]
  - ENDOMETRITIS [None]
  - ROAD TRAFFIC ACCIDENT [None]
  - HYPOAESTHESIA [None]
  - EMOTIONAL DISORDER [None]
  - INJURY [None]
  - GENITAL HERPES [None]
